FAERS Safety Report 9379979 (Version 1)
Quarter: 2013Q3

REPORT INFORMATION
  Report Type: Spontaneous
  Country: US (occurrence: US)
  Receive Date: 20130702
  Receipt Date: 20130702
  Transmission Date: 20140515
  Serious: Yes (Other)
  Sender: FDA-Public Use
  Company Number: US-BAYER-2013-078319

PATIENT
  Age: 56 Year
  Sex: Male
  Weight: 145.13 kg

DRUGS (5)
  1. ALKA-SELTZER FRUIT CHEWS [Suspect]
     Indication: DYSPEPSIA
     Dosage: 1-2 TAB, PRN
     Route: 048
     Dates: start: 201306
  2. INSULIN [Concomitant]
  3. METFORMIN [Concomitant]
  4. ZOCOR [Concomitant]
  5. METOPROLOL [Concomitant]

REACTIONS (1)
  - Blood glucose increased [None]
